FAERS Safety Report 15532640 (Version 5)
Quarter: 2019Q1

REPORT INFORMATION
  Report Type: Report from Study
  Country: US (occurrence: US)
  Receive Date: 20181019
  Receipt Date: 20190218
  Transmission Date: 20190417
  Serious: Yes (Death, Hospitalization)
  Sender: FDA-Public Use
  Company Number: US-BAYER-2018-185994

PATIENT
  Sex: Male
  Weight: 95 kg

DRUGS (8)
  1. LORAZEPAM. [Concomitant]
     Active Substance: LORAZEPAM
     Indication: PROPHYLAXIS OF NAUSEA AND VOMITING
     Dosage: 0.5 MG, PRN
     Route: 048
     Dates: start: 20181002
  2. ONDANSETRON [Concomitant]
     Active Substance: ONDANSETRON
     Indication: PROPHYLAXIS OF NAUSEA AND VOMITING
     Dosage: Q
     Route: 048
     Dates: start: 20181002
  3. PREVACID [Concomitant]
     Active Substance: LANSOPRAZOLE
     Indication: GASTROOESOPHAGEAL REFLUX DISEASE
     Dosage: 30 MG, BID
  4. REGLAN [Concomitant]
     Active Substance: METOCLOPRAMIDE HYDROCHLORIDE
     Indication: GASTROOESOPHAGEAL REFLUX DISEASE
     Dosage: 5 MG, BID
  5. COPANLISIB. [Suspect]
     Active Substance: COPANLISIB
     Indication: NEOPLASM MALIGNANT
     Dosage: 60 MG, 3 WEEKS ON / 1 WEEK OFF
     Route: 042
     Dates: start: 20181002, end: 20181002
  6. OMEPRAZOLE. [Concomitant]
     Active Substance: OMEPRAZOLE
     Indication: GASTROOESOPHAGEAL REFLUX DISEASE
     Dosage: 20 MG, ONCE
     Route: 048
     Dates: start: 20181004, end: 20181004
  7. COPANLISIB. [Suspect]
     Active Substance: COPANLISIB
     Indication: NEOPLASM MALIGNANT
     Dosage: 45 MG, 3 WEEKS ON / 1 WEEK OFF
     Route: 042
     Dates: start: 20181015, end: 20181015
  8. BACTRIM [Concomitant]
     Active Substance: SULFAMETHOXAZOLE\TRIMETHOPRIM
     Dosage: 800 MG, BID
     Route: 048
     Dates: end: 20181028

REACTIONS (4)
  - Hyperglycaemia [Recovering/Resolving]
  - Pyrexia [Recovered/Resolved]
  - Hyperglycaemia [Recovered/Resolved]
  - Blood creatinine increased [Recovered/Resolved]

NARRATIVE: CASE EVENT DATE: 20181003
